FAERS Safety Report 8251031-5 (Version None)
Quarter: 2012Q2

REPORT INFORMATION
  Report Type: 
  Country: None (occurrence: None)
  Receive Date: 20120402
  Receipt Date: 20120326
  Transmission Date: 20120825
  Serious: Yes (Other)
  Sender: FDA-Public Use
  Company Number: US-BAYER-2012-030202

PATIENT
  Age: 47 Year
  Sex: Female

DRUGS (9)
  1. LASIX [Concomitant]
     Dosage: 40 MG, QD
     Route: 048
     Dates: start: 20080721
  2. DOXYCYCLINE HYCLATE [Concomitant]
     Indication: TOOTH INFECTION
     Dosage: 100 MG, QD
     Route: 048
     Dates: start: 20110615
  3. YAZ [Suspect]
  4. CIPROFLOXACIN [Concomitant]
     Dosage: 500 MG, BID
     Dates: start: 20110616
  5. MELOXICAM [Concomitant]
     Dosage: 15 MG, QD
     Route: 048
     Dates: start: 20110809
  6. DROSPIRENONE AND ETHINYL ESTRADIOL [Suspect]
  7. NAPROXEN [Concomitant]
     Dosage: 250 MG, PRN
     Route: 048
     Dates: start: 20110110, end: 20110901
  8. NEXIUM [Concomitant]
     Dosage: 40 MG, PRN
     Route: 048
     Dates: start: 20100318, end: 20110901
  9. ACETAMINOPHEN AND OXYCODONE HCL [Concomitant]
     Indication: PAIN
     Dosage: UNK
     Route: 048
     Dates: start: 20110615

REACTIONS (1)
  - THROMBOPHLEBITIS SUPERFICIAL [None]
